FAERS Safety Report 7631533-2 (Version None)
Quarter: 2011Q3

REPORT INFORMATION
  Report Type: 
  Country: None (occurrence: None)
  Receive Date: 20110725
  Receipt Date: 20110720
  Transmission Date: 20111222
  Serious: Yes (Life-Threatening, Hospitalization)
  Sender: FDA-Public Use
  Company Number: FR-B.I. PHARMACEUTICALS,INC./RIDGEFIELD-2011-FF-00703FF

PATIENT
  Sex: Female

DRUGS (8)
  1. TOCOPHEROL CONCENTRATE CAP [Concomitant]
  2. ZITHROMAX [Concomitant]
     Indication: ANTIINFLAMMATORY THERAPY
     Dosage: 250 MG
  3. SPIRIVA [Suspect]
     Indication: CYSTIC FIBROSIS
     Route: 055
     Dates: start: 20110101, end: 20110706
  4. DELURSAN [Concomitant]
  5. ZOLOFT [Suspect]
     Route: 048
     Dates: start: 20110617, end: 20110706
  6. CREON [Concomitant]
  7. A 313 [Concomitant]
  8. DNAASE [Concomitant]

REACTIONS (3)
  - EXTRASYSTOLES [None]
  - ARRHYTHMIA [None]
  - BUNDLE BRANCH BLOCK [None]
